FAERS Safety Report 12764854 (Version 4)
Quarter: 2016Q4

REPORT INFORMATION
  Report Type: Spontaneous
  Country: CN (occurrence: CN)
  Receive Date: 20160921
  Receipt Date: 20161130
  Transmission Date: 20170207
  Serious: Yes (Death)
  Sender: FDA-Public Use
  Company Number: CN-ROCHE-1830946

PATIENT
  Age: 46 Year
  Sex: Female

DRUGS (3)
  1. SODIUM CHLORIDE. [Suspect]
     Active Substance: SODIUM CHLORIDE
     Indication: PRODUCT USED FOR UNKNOWN INDICATION
     Dosage: 100 ML: 0.9G, AS SOLVENT
     Route: 041
     Dates: start: 20160913, end: 20160913
  2. ROCEPHIN [Suspect]
     Active Substance: CEFTRIAXONE SODIUM
     Indication: PYREXIA
     Route: 041
     Dates: start: 20160913, end: 20160913
  3. ROCEPHIN [Suspect]
     Active Substance: CEFTRIAXONE SODIUM
     Indication: DIARRHOEA
     Dosage: (1G, 7 VIALS)
     Route: 041

REACTIONS (10)
  - Cardiac arrest [Fatal]
  - Anaphylactic shock [Fatal]
  - Hyperhidrosis [Fatal]
  - Product quality issue [Fatal]
  - Nausea [Fatal]
  - Ventricular fibrillation [Fatal]
  - Septic shock [Fatal]
  - Seizure [Fatal]
  - Respiratory failure [Fatal]
  - Chest discomfort [Fatal]

NARRATIVE: CASE EVENT DATE: 20160913
